FAERS Safety Report 6881806-6 (Version None)
Quarter: 2010Q3

REPORT INFORMATION
  Report Type: 
  Country: None (occurrence: None)
  Receive Date: 20100728
  Receipt Date: 20100728
  Transmission Date: 20110219
  Serious: No
  Sender: FDA-Public Use
  Company Number: None

PATIENT
  Sex: Female
  Weight: 57.1532 kg

DRUGS (1)
  1. COREG CR [Suspect]
     Indication: HYPERTENSION
     Dosage: 80 MG 1 A DAY, ABOUT 2 YRS

REACTIONS (1)
  - COUGH [None]
